FAERS Safety Report 8481166-3 (Version None)
Quarter: 2012Q3

REPORT INFORMATION
  Report Type: 
  Country: None (occurrence: None)
  Receive Date: 20120702
  Receipt Date: 20120628
  Transmission Date: 20120928
  Serious: Yes (Other)
  Sender: FDA-Public Use
  Company Number: PHHY2012JP053479

PATIENT
  Age: 28 Year
  Sex: Female

DRUGS (3)
  1. DEXAMETHASONE [Concomitant]
     Indication: HISTIOCYTOSIS HAEMATOPHAGIC
  2. METHYLPREDNISOLONE [Concomitant]
     Indication: HISTIOCYTOSIS HAEMATOPHAGIC
     Dosage: UNK UKN, UNK
  3. CYCLOSPORINE [Suspect]
     Indication: HISTIOCYTOSIS HAEMATOPHAGIC

REACTIONS (5)
  - CYTOMEGALOVIRUS INFECTION [None]
  - MATERNAL EXPOSURE DURING PREGNANCY [None]
  - FOETAL GROWTH RESTRICTION [None]
  - PREMATURE DELIVERY [None]
  - MOUTH ULCERATION [None]
